FAERS Safety Report 24037739 (Version 1)
Quarter: 2024Q3

REPORT INFORMATION
  Report Type: Report from Study
  Country: US (occurrence: US)
  Receive Date: 20240702
  Receipt Date: 20240702
  Transmission Date: 20241017
  Serious: No
  Sender: RANBAXY
  Company Number: US-SUN PHARMACEUTICAL INDUSTRIES LTD-2020R1-267034

PATIENT
  Sex: Female

DRUGS (2)
  1. ABSORICA [Suspect]
     Active Substance: ISOTRETINOIN
     Indication: Acne
     Dosage: 20 MILLIGRAM, BID
     Route: 048
     Dates: start: 20200921
  2. ABSORICA [Suspect]
     Active Substance: ISOTRETINOIN
     Dosage: UNK
     Route: 065
     Dates: start: 20201020, end: 20201119

REACTIONS (5)
  - Hypersensitivity [Unknown]
  - Rash [Unknown]
  - Back pain [Unknown]
  - Chest discomfort [Unknown]
  - Vulvovaginal rash [Unknown]

NARRATIVE: CASE EVENT DATE: 20200101
